FAERS Safety Report 8261133-5 (Version None)
Quarter: 2012Q2

REPORT INFORMATION
  Report Type: 
  Country: None (occurrence: None)
  Receive Date: 20120405
  Receipt Date: 20120404
  Transmission Date: 20120825
  Serious: Yes (Other)
  Sender: FDA-Public Use
  Company Number: PHHY2011NL96529

PATIENT
  Sex: Female
  Weight: 73 kg

DRUGS (11)
  1. ZOMETA [Suspect]
     Indication: METASTASES TO BONE
     Dosage: 4 MG/5 ML, ONCE 21 DAYS IV 230 ML/H
     Dates: start: 20110809
  2. HERCEPTIN [Concomitant]
  3. ZOMETA [Suspect]
     Dosage: 4 MG/100 ML 1X PER 21 DAYS.
     Dates: start: 20120124
  4. ZOMETA [Suspect]
     Dosage: 4 MG/5 ML, ONCE 21 DAYS IV 230 ML/H
     Dates: start: 20111122
  5. ZOMETA [Suspect]
     Dosage: 4 MG/100ML ONCE PER 28 DAYS
     Dates: start: 20120103
  6. CHEMOTHERAPEUTICS [Concomitant]
  7. ZOMETA [Suspect]
     Dosage: 4 MG/5 ML, ONCE 21 DAYS IV 230 ML/H
     Dates: start: 20111011
  8. ZOMETA [Suspect]
     Dosage: 4 MG/5 ML, ONCE 21 DAYS IV 230 ML/H
     Dates: start: 20111101
  9. ZOMETA [Suspect]
     Dosage: 4 MG/100ML ONCE PER 28 DAYS
     Dates: start: 20111213
  10. OXYCODONE HCL [Concomitant]
  11. OXYCONTIN [Concomitant]

REACTIONS (4)
  - FATIGUE [None]
  - SENSATION OF HEAVINESS [None]
  - GENERAL PHYSICAL HEALTH DETERIORATION [None]
  - ASTHENIA [None]
